FAERS Safety Report 21023224 (Version 1)
Quarter: 2022Q2

REPORT INFORMATION
  Report Type: Spontaneous
  Country: US (occurrence: None)
  Receive Date: 20220629
  Receipt Date: 20220629
  Transmission Date: 20220721
  Serious: Yes (Hospitalization)
  Sender: FDA-Public Use
  Company Number: None

PATIENT
  Age: 70 Year
  Sex: Male
  Weight: 116.57 kg

DRUGS (1)
  1. ATEZOLIZUMAB [Suspect]
     Active Substance: ATEZOLIZUMAB
     Indication: Small cell lung cancer
     Dosage: FREQUENCY : ONCE;?
     Route: 042
     Dates: start: 20200330

REACTIONS (2)
  - Glomerulonephritis membranous [None]
  - Nephrotic syndrome [None]

NARRATIVE: CASE EVENT DATE: 20211203
